FAERS Safety Report 8885826 (Version 2)
Quarter: 2012Q4

REPORT INFORMATION
  Report Type: 
  Country: DE (occurrence: DE)
  Receive Date: 20121105
  Receipt Date: 20121120
  Transmission Date: 20130627
  Serious: Yes (Hospitalization, Other)
  Sender: FDA-Public Use
  Company Number: DE-ELI_LILLY_AND_COMPANY-DE201210007308

PATIENT
  Age: 24 Year
  Sex: Female

DRUGS (2)
  1. ZYPREXA [Suspect]
     Indication: MAJOR DEPRESSION
     Dosage: 10 mg, UNK
     Route: 048
     Dates: start: 20121001
  2. ZYPREXA [Suspect]
     Dosage: 15 mg, UNK
     Route: 048
     Dates: start: 20121004

REACTIONS (2)
  - Thrombocytopenia [Recovering/Resolving]
  - Pain [Unknown]
